FAERS Safety Report 5936291-5 (Version None)
Quarter: 2008Q4

REPORT INFORMATION
  Report Type: 
  Country: None (occurrence: None)
  Receive Date: 20081030
  Receipt Date: 20081023
  Transmission Date: 20090506
  Serious: Yes (Other)
  Sender: FDA-Public Use
  Company Number: US-JNJCH-2008052861

PATIENT
  Age: 73 Year
  Sex: Male
  Weight: 70.8 kg

DRUGS (1)
  1. BENGAY ULTRA STRENGTH [Suspect]
     Indication: BACK PAIN
     Dosage: TEXT:APPLIED IT ON A PATCH OF SKIN 2X S A DAY
     Route: 061

REACTIONS (3)
  - BLISTER [None]
  - ERYTHEMA [None]
  - LOCAL SWELLING [None]
